FAERS Safety Report 7310251-4 (Version None)
Quarter: 2011Q1

REPORT INFORMATION
  Report Type: 
  Country: None (occurrence: None)
  Receive Date: 20110224
  Receipt Date: 20110219
  Transmission Date: 20110831
  Serious: No
  Sender: FDA-Public Use
  Company Number: US-PFIZER INC-2011036813

PATIENT
  Sex: Male

DRUGS (3)
  1. OXYCODONE [Concomitant]
     Dosage: 15 MG, UNK
     Route: 048
  2. FENTANYL [Concomitant]
     Dosage: UNK
  3. ADVIL COLD AND SINUS [Suspect]
     Dosage: UNK
     Route: 048
     Dates: start: 20110101

REACTIONS (1)
  - DRUG SCREEN POSITIVE [None]
